FAERS Safety Report 4328177-7 (Version None)
Quarter: 2004Q1

REPORT INFORMATION
  Report Type: 
  Country: None (occurrence: None)
  Receive Date: 20040331
  Receipt Date: 20040323
  Transmission Date: 20041129
  Serious: Yes (Other)
  Sender: FDA-Public Use
  Company Number: BR-GLAXOSMITHKLINE-A0369717B

PATIENT
  Age: 60 Year
  Sex: Male
  Weight: 41.5 kg

DRUGS (1)
  1. SALMETEROL/FLUTICASONE PROPIONATE 50/500UG [Suspect]
     Indication: CHRONIC OBSTRUCTIVE AIRWAYS DISEASE
     Route: 055
     Dates: start: 20011211

REACTIONS (7)
  - HOARSENESS [None]
  - LUNG INFILTRATION [None]
  - MYALGIA [None]
  - NAUSEA [None]
  - PULMONARY TUBERCULOSIS [None]
  - PYREXIA [None]
  - TUBERCULOSIS [None]
